FAERS Safety Report 17639393 (Version 1)
Quarter: 2020Q2

REPORT INFORMATION
  Report Type: Report from Study
  Country: US (occurrence: US)
  Receive Date: 20200407
  Receipt Date: 20200407
  Transmission Date: 20200713
  Serious: Yes (Death, Hospitalization)
  Sender: FDA-Public Use
  Company Number: PHHO2010US020589

PATIENT
  Age: 56 Year
  Sex: Female
  Weight: 100.2 kg

DRUGS (4)
  1. HYDROCODONE [Concomitant]
     Active Substance: HYDROCODONE
     Indication: CHEST PAIN
     Dosage: 1 DF, 6QD
     Route: 048
     Dates: start: 20100609
  2. GSK2141795 [Suspect]
     Active Substance: UPROSERTIB
     Indication: NEOPLASM
     Dosage: 25 MG, QD
     Route: 048
     Dates: start: 20100618
  3. DURAGESIC [Concomitant]
     Active Substance: FENTANYL
     Indication: MUSCULOSKELETAL PAIN
     Dosage: 25 UG,
     Route: 062
     Dates: start: 20100701
  4. GSK1120212 [Suspect]
     Active Substance: TRAMETINIB
     Indication: NEOPLASM
     Dosage: 0.5 MG, QD
     Route: 048
     Dates: start: 20100702

REACTIONS (7)
  - Confusional state [Not Recovered/Not Resolved]
  - Dyspnoea [Not Recovered/Not Resolved]
  - Waist circumference increased [Unknown]
  - Large intestinal obstruction [Not Recovered/Not Resolved]
  - Mental status changes [Unknown]
  - Death [Fatal]
  - Pleural effusion [Unknown]

NARRATIVE: CASE EVENT DATE: 20100716
